FAERS Safety Report 5320173-6 (Version None)
Quarter: 2007Q2

REPORT INFORMATION
  Report Type: 
  Country: None (occurrence: None)
  Receive Date: 20070503
  Receipt Date: 20070425
  Transmission Date: 20071010
  Serious: Yes (Hospitalization)
  Sender: FDA-Public Use
  Company Number: 2007BI009157

PATIENT
  Age: 55 Year
  Sex: Female
  Weight: 79.3795 kg

DRUGS (2)
  1. NATALIZUMAB [Suspect]
     Indication: DRUG USE FOR UNKNOWN INDICATION
     Dosage: 300 MG; QM; IV
     Route: 042
     Dates: start: 20050101, end: 20050101
  2. NATALIZUMAB [Suspect]
     Indication: DRUG USE FOR UNKNOWN INDICATION
     Dosage: 300 MG; QM; IV
     Route: 042
     Dates: start: 20061001

REACTIONS (4)
  - BACK PAIN [None]
  - CYSTITIS [None]
  - DYSURIA [None]
  - FATIGUE [None]
